FAERS Safety Report 11419138 (Version 3)
Quarter: 2015Q3

REPORT INFORMATION
  Report Type: Spontaneous
  Country: US (occurrence: US)
  Receive Date: 20150826
  Receipt Date: 20150911
  Transmission Date: 20151125
  Serious: Yes (Other)
  Sender: FDA-Public Use
  Company Number: US-ROCHE-1626127

PATIENT
  Sex: Female
  Weight: 82.63 kg

DRUGS (4)
  1. ESBRIET [Suspect]
     Active Substance: PIRFENIDONE
     Dosage: 3 CAPSULES.
     Route: 048
     Dates: start: 20150207
  2. ESBRIET [Suspect]
     Active Substance: PIRFENIDONE
     Indication: IDIOPATHIC PULMONARY FIBROSIS
     Route: 048
     Dates: start: 20150206
  3. ESBRIET [Suspect]
     Active Substance: PIRFENIDONE
     Route: 048
  4. ESBRIET [Suspect]
     Active Substance: PIRFENIDONE
     Route: 048

REACTIONS (9)
  - Blood sodium decreased [Unknown]
  - Constipation [Unknown]
  - Abdominal pain upper [Unknown]
  - Malaise [Unknown]
  - Faecal incontinence [Unknown]
  - Vomiting [Unknown]
  - Diarrhoea [Unknown]
  - Blindness unilateral [Unknown]
  - Dehydration [Unknown]
